FAERS Safety Report 16804685 (Version 2)
Quarter: 2019Q3

REPORT INFORMATION
  Report Type: Spontaneous
  Country: US (occurrence: US)
  Receive Date: 20190913
  Receipt Date: 20190917
  Transmission Date: 20191005
  Serious: Yes (Death)
  Sender: FDA-Public Use
  Company Number: US-PFIZER INC-2019375028

PATIENT
  Age: 27 Year
  Sex: Male

DRUGS (6)
  1. PENTAMIDINE [Suspect]
     Active Substance: PENTAMIDINE
     Indication: ACANTHAMOEBA INFECTION
     Dosage: UNK
  2. FLUCONAZOLE. [Suspect]
     Active Substance: FLUCONAZOLE
     Indication: ACANTHAMOEBA INFECTION
     Dosage: UNK
  3. AZITHROMYCIN ANHYDROUS. [Suspect]
     Active Substance: AZITHROMYCIN ANHYDROUS
     Indication: ACANTHAMOEBA INFECTION
     Dosage: UNK
  4. SULPHADIAZINE [SULFADIAZINE] [Suspect]
     Active Substance: SULFADIAZINE
     Indication: ACANTHAMOEBA INFECTION
     Dosage: UNK
  5. MILTEFOSINE [Suspect]
     Active Substance: MILTEFOSINE
     Indication: ACANTHAMOEBA INFECTION
     Dosage: UNK
  6. FLUCYTOSINE. [Suspect]
     Active Substance: FLUCYTOSINE
     Indication: ACANTHAMOEBA INFECTION
     Dosage: UNK

REACTIONS (1)
  - Drug ineffective [Fatal]
